FAERS Safety Report 7717527-7 (Version None)
Quarter: 2011Q3

REPORT INFORMATION
  Report Type: 
  Country: None (occurrence: None)
  Receive Date: 20110830
  Receipt Date: 20110818
  Transmission Date: 20111222
  Serious: Yes (Other)
  Sender: FDA-Public Use
  Company Number: JP-ELI_LILLY_AND_COMPANY-JP201104006010

PATIENT
  Age: 77 Year
  Sex: Female

DRUGS (5)
  1. ELCITONIN [Concomitant]
  2. FORTEO [Suspect]
     Indication: OSTEOPOROSIS
     Dosage: UNK
     Route: 058
     Dates: start: 20110314, end: 20110731
  3. METHYCOBAL [Concomitant]
     Dosage: UNK
  4. OPALMON [Concomitant]
     Dosage: UNK
     Route: 048
  5. NEUROTROPIN                        /06251301/ [Concomitant]

REACTIONS (5)
  - FEELING ABNORMAL [None]
  - MALAISE [None]
  - INJECTION SITE HAEMATOMA [None]
  - INSOMNIA [None]
  - RETINAL ARTERY EMBOLISM [None]
